FAERS Safety Report 18876200 (Version 3)
Quarter: 2021Q1

REPORT INFORMATION
  Report Type: Spontaneous
  Country: JP (occurrence: JP)
  Receive Date: 20210210
  Receipt Date: 20210324
  Transmission Date: 20210420
  Serious: Yes (Hospitalization, Other)
  Sender: FDA-Public Use
  Company Number: JP-FERRINGPH-2021FE00692

PATIENT
  Age: 9 Decade
  Sex: Female

DRUGS (2)
  1. DESMOPRESSIN KYOWA [Suspect]
     Active Substance: DESMOPRESSIN
     Indication: HYPERNATRAEMIA
     Route: 065
  2. DESMOPRESSIN KYOWA [Suspect]
     Active Substance: DESMOPRESSIN
     Indication: HYPERNATRAEMIA
     Route: 065

REACTIONS (8)
  - Physical deconditioning [Unknown]
  - Hospitalisation [Not Recovered/Not Resolved]
  - Blood sodium increased [Unknown]
  - Off label use [Unknown]
  - Loss of consciousness [Recovered/Resolved]
  - Product use in unapproved indication [Unknown]
  - Recalled product administered [Unknown]
  - Out of specification product use [Unknown]

NARRATIVE: CASE EVENT DATE: 2020
